FAERS Safety Report 24617515 (Version 2)
Quarter: 2024Q4

REPORT INFORMATION
  Report Type: Report from Study
  Country: US (occurrence: US)
  Receive Date: 20241114
  Receipt Date: 20241217
  Transmission Date: 20250115
  Serious: Yes (Hospitalization, Other)
  Sender: ABBVIE
  Company Number: US-ABBVIE-5963322

PATIENT
  Age: 57 Year
  Sex: Male

DRUGS (1)
  1. SKYRIZI [Suspect]
     Active Substance: RISANKIZUMAB-RZAA
     Indication: Psoriasis
     Dosage: FORM STRENGTH: 150 MG
     Route: 058
     Dates: start: 2022, end: 202409

REACTIONS (8)
  - Incision site haemorrhage [Recovered/Resolved]
  - Blister rupture [Unknown]
  - Pain in extremity [Recovering/Resolving]
  - Impaired healing [Not Recovered/Not Resolved]
  - Osteomyelitis [Recovered/Resolved]
  - Wound haemorrhage [Recovered/Resolved]
  - Central venous catheterisation [Recovered/Resolved]
  - Toe amputation [Unknown]

NARRATIVE: CASE EVENT DATE: 20230101
